FAERS Safety Report 9157148 (Version 1)
Quarter: 2013Q1

REPORT INFORMATION
  Report Type: Spontaneous
  Country: US (occurrence: None)
  Receive Date: 20130303
  Receipt Date: 20130303
  Transmission Date: 20140127
  Serious: Yes (Other)
  Sender: FDA-Public Use
  Company Number: None

PATIENT
  Age: 59 Year
  Sex: Male
  Weight: 113.4 kg

DRUGS (2)
  1. DULERA [Suspect]
     Indication: PNEUMONIA
     Dosage: 2 INHALATIONS, TWICE A DAY, INHALED
     Route: 055
     Dates: start: 201206, end: 201301
  2. DULERA [Suspect]
     Indication: ASTHMA
     Dosage: 2 INHALATIONS, TWICE A DAY, INHALED
     Route: 055
     Dates: start: 201206, end: 201301

REACTIONS (12)
  - Chest pain [None]
  - Dyspnoea [None]
  - Dysphonia [None]
  - Oropharyngeal pain [None]
  - Nervousness [None]
  - Dizziness [None]
  - Insomnia [None]
  - Vision blurred [None]
  - Tremor [None]
  - Depression [None]
  - Bronchospasm [None]
  - Asthenia [None]
